FAERS Safety Report 4614810-9 (Version None)
Quarter: 2005Q1

REPORT INFORMATION
  Report Type: 
  Country: None (occurrence: None)
  Receive Date: 20050322
  Receipt Date: 20041109
  Transmission Date: 20050727
  Serious: Yes (Death, Other)
  Sender: FDA-Public Use
  Company Number: PHNU2004DE03822

PATIENT
  Age: 1 Year
  Sex: Male
  Weight: 8 kg

DRUGS (2)
  1. SANDOSTATIN [Suspect]
     Indication: CHYLOTHORAX
     Dosage: 20 TO 25 A?G
     Route: 058
     Dates: start: 20041103, end: 20041116
  2. SANDOSTATIN [Suspect]
     Dosage: UP TO 60 A?G
     Route: 058
     Dates: start: 20041120, end: 20050218

REACTIONS (5)
  - ATRIOVENTRICULAR BLOCK SECOND DEGREE [None]
  - DISEASE PROGRESSION [None]
  - HYPERTROPHIC CARDIOMYOPATHY [None]
  - METABOLIC DISORDER [None]
  - MITRAL VALVE STENOSIS [None]
